FAERS Safety Report 23051897 (Version 1)
Quarter: 2023Q4

REPORT INFORMATION
  Report Type: Spontaneous
  Country: US (occurrence: US)
  Receive Date: 20231010
  Receipt Date: 20231010
  Transmission Date: 20240109
  Serious: Yes (Other)
  Sender: FDA-Public Use
  Company Number: US-PFIZER INC-PV202300165817

PATIENT
  Age: 68 Year
  Sex: Male

DRUGS (3)
  1. BLEOMYCIN SULFATE [Suspect]
     Active Substance: BLEOMYCIN SULFATE
     Indication: Extragonadal primary seminoma (pure)
     Dosage: UNK, CYCLIC (4 CYCLES)
  2. CARBOPLATIN [Suspect]
     Active Substance: CARBOPLATIN
     Indication: Extragonadal primary seminoma (pure)
     Dosage: UNK, CYCLIC (4 CYCLES)
  3. ETOPOSIDE [Suspect]
     Active Substance: ETOPOSIDE
     Indication: Extragonadal primary seminoma (pure)
     Dosage: UNK, CYCLIC (4 CYCLES)

REACTIONS (1)
  - Pulmonary fibrosis [Unknown]
